FAERS Safety Report 14215728 (Version 4)
Quarter: 2018Q1

REPORT INFORMATION
  Report Type: Spontaneous
  Country: US (occurrence: US)
  Receive Date: 20171122
  Receipt Date: 20180131
  Transmission Date: 20180508
  Serious: Yes (Hospitalization, Other)
  Sender: FDA-Public Use
  Company Number: US-INCYTE CORPORATION-2017IN010047

PATIENT

DRUGS (16)
  1. JAKAFI [Suspect]
     Active Substance: RUXOLITINIB
     Indication: JANUS KINASE 2 MUTATION
     Dosage: 40 MG, QOD ALTERNATING WITH 20 MG QOD
     Route: 048
     Dates: start: 20140327, end: 2014
  2. JAKAFI [Suspect]
     Active Substance: RUXOLITINIB
     Dosage: 15 MG, BID
     Route: 048
     Dates: start: 20140508
  3. HYDROXYUREA. [Concomitant]
     Active Substance: HYDROXYUREA
     Indication: PRODUCT USED FOR UNKNOWN INDICATION
     Dosage: 500 MG, QD
     Route: 048
     Dates: start: 20120725, end: 20141102
  4. ADVIL (MEFENAMIC ACID) [Concomitant]
     Active Substance: MEFENAMIC ACID
     Indication: PRODUCT USED FOR UNKNOWN INDICATION
     Dosage: 1 TABLET QD AS NEEDED
     Route: 048
     Dates: end: 20160809
  5. SAW PALMETTO                       /00833501/ [Concomitant]
     Active Substance: HERBALS\SAW PALMETTO
     Indication: PRODUCT USED FOR UNKNOWN INDICATION
     Dosage: 320 MG, QD
     Route: 048
     Dates: end: 20160607
  6. AMOXICILLIN. [Concomitant]
     Active Substance: AMOXICILLIN
     Indication: PRODUCT USED FOR UNKNOWN INDICATION
  7. JAKAFI [Suspect]
     Active Substance: RUXOLITINIB
     Dosage: 20 MG BID
     Route: 048
     Dates: start: 201801
  8. OMEPRAZOLE. [Concomitant]
     Active Substance: OMEPRAZOLE
     Indication: PRODUCT USED FOR UNKNOWN INDICATION
  9. HYDROXYUREA. [Concomitant]
     Active Substance: HYDROXYUREA
     Dosage: UNK
     Route: 048
     Dates: start: 20120706, end: 20140620
  10. NEXIUM [Concomitant]
     Active Substance: ESOMEPRAZOLE MAGNESIUM
     Indication: PRODUCT USED FOR UNKNOWN INDICATION
     Dosage: 20 MG, QD
     Route: 048
     Dates: end: 20150901
  11. PROSCAR [Concomitant]
     Active Substance: FINASTERIDE
     Indication: PRODUCT USED FOR UNKNOWN INDICATION
     Dosage: 5 MG, QD
     Route: 048
     Dates: end: 20160216
  12. JAKAFI [Suspect]
     Active Substance: RUXOLITINIB
     Dosage: 20 MG, BID
     Route: 048
     Dates: start: 20161209
  13. JAKAFI [Suspect]
     Active Substance: RUXOLITINIB
     Indication: MYELOFIBROSIS
     Dosage: 20 MG, BID
     Route: 048
     Dates: start: 201402
  14. JAKAFI [Suspect]
     Active Substance: RUXOLITINIB
     Dosage: 20 MG, BID
     Route: 048
     Dates: start: 20161129
  15. EXJADE [Concomitant]
     Active Substance: DEFERASIROX
     Indication: PRODUCT USED FOR UNKNOWN INDICATION
     Dosage: 750 MG
     Route: 048
     Dates: start: 20170524
  16. IRON [Concomitant]
     Active Substance: IRON
     Indication: PRODUCT USED FOR UNKNOWN INDICATION
     Dosage: 65 MG, QD
     Route: 048
     Dates: end: 20140620

REACTIONS (35)
  - Hepatic enzyme increased [Unknown]
  - Disease progression [Unknown]
  - Aortic valve disease [Not Recovered/Not Resolved]
  - Myocardial infarction [Unknown]
  - Asthenia [Unknown]
  - Malaise [Unknown]
  - Weight abnormal [Recovering/Resolving]
  - Haemochromatosis [Unknown]
  - Squamous cell carcinoma of head and neck [Unknown]
  - Haemoglobin decreased [Recovering/Resolving]
  - Upper respiratory tract infection [Unknown]
  - Cellulitis [Recovered/Resolved]
  - Splenomegaly [Unknown]
  - Blood product transfusion dependent [Unknown]
  - Dyspnoea exertional [Recovering/Resolving]
  - Anaemia [Recovering/Resolving]
  - Pneumonia [Recovered/Resolved]
  - Fatigue [Unknown]
  - Blood iron increased [Unknown]
  - Chest pain [Unknown]
  - Dyspnoea [Unknown]
  - Cardiac murmur [Unknown]
  - Sputum discoloured [Unknown]
  - Basal cell carcinoma [Unknown]
  - Decreased appetite [Unknown]
  - Sciatica [Recovering/Resolving]
  - Cataract [Unknown]
  - Cough [Unknown]
  - Diarrhoea [Unknown]
  - Weight decreased [Unknown]
  - Nasopharyngitis [Unknown]
  - Pain in extremity [Unknown]
  - Muscle spasms [Recovered/Resolved]
  - Serum ferritin increased [Unknown]
  - White blood cell count increased [Unknown]

NARRATIVE: CASE EVENT DATE: 201403
